FAERS Safety Report 9002892 (Version 1)
Quarter: 2013Q1

REPORT INFORMATION
  Report Type: Spontaneous
  Country: US (occurrence: US)
  Receive Date: 20130108
  Receipt Date: 20130108
  Transmission Date: 20140127
  Serious: Yes (Other)
  Sender: FDA-Public Use
  Company Number: US-PFIZER INC-2013002697

PATIENT
  Sex: Female

DRUGS (1)
  1. PREMPRO [Suspect]
     Dosage: ESTROGENS CONJUGATED 0.3 MG, MEDROXYPROGESTERONE ACETATE 1.5 MG

REACTIONS (1)
  - Coeliac disease [Unknown]
